FAERS Safety Report 5145472-2 (Version None)
Quarter: 2006Q4

REPORT INFORMATION
  Report Type: 
  Country: None (occurrence: None)
  Receive Date: 20061101
  Receipt Date: 20061011
  Transmission Date: 20070319
  Serious: Yes (Other)
  Sender: FDA-Public Use
  Company Number: US200610002161

PATIENT
  Age: 37 Year
  Sex: Female

DRUGS (17)
  1. CYMBALTA [Suspect]
     Indication: PAIN
     Dosage: 60 MG
     Dates: start: 20060601
  2. STRATTERA [Suspect]
     Indication: ATTENTION DEFICIT/HYPERACTIVITY DISORDER
     Dosage: 80
     Dates: start: 20040101, end: 20060601
  3. DIURETICS [Concomitant]
  4. ALLEGRA [Concomitant]
  5. MORPHINE [Concomitant]
  6. CALCIUM (CALCIUM) [Concomitant]
  7. VALIUM /NET/ (DIAZEPAM) [Concomitant]
  8. POTASSIUM (POTASSIUM) [Concomitant]
  9. AMBIEN [Concomitant]
  10. NEXIUM /UNK/ (ESOMEPRAZOLE) [Concomitant]
  11. LOVASTATIN [Concomitant]
  12. NIAPREN (IBUPROFEN) [Concomitant]
  13. ROBAXIN [Concomitant]
  14. IRON (IRON) [Concomitant]
  15. PERCOCET [Concomitant]
  16. NASONEX [Concomitant]
  17. AVINZA /USA/ (MORPHINE SULFATE) [Concomitant]

REACTIONS (5)
  - BONE GRAFT [None]
  - DEPRESSION [None]
  - DILATATION VENTRICULAR [None]
  - INTERVERTEBRAL DISC OPERATION [None]
  - MITRAL VALVE DISEASE [None]
